FAERS Safety Report 15903518 (Version 1)
Quarter: 2019Q1

REPORT INFORMATION
  Report Type: Report from Study
  Country: CO (occurrence: CO)
  Receive Date: 20190203
  Receipt Date: 20190203
  Transmission Date: 20190417
  Serious: Yes (Death)
  Sender: FDA-Public Use
  Company Number: PHHY2018CO053042

PATIENT
  Age: 64 Year
  Sex: Female
  Weight: 48 kg

DRUGS (1)
  1. AFINITOR [Suspect]
     Active Substance: EVEROLIMUS
     Indication: BREAST CANCER
     Dosage: 10 MG, QD
     Route: 048

REACTIONS (6)
  - Dry eye [Unknown]
  - Rash generalised [Unknown]
  - Death [Fatal]
  - Dry skin [Unknown]
  - Pruritus [Unknown]
  - Haemoglobin decreased [Unknown]

NARRATIVE: CASE EVENT DATE: 20190131
